FAERS Safety Report 25235993 (Version 2)
Quarter: 2025Q4

REPORT INFORMATION
  Report Type: Spontaneous
  Country: US (occurrence: None)
  Receive Date: 20250424
  Receipt Date: 20251121
  Transmission Date: 20260117
  Serious: No
  Sender: INCYTE
  Company Number: US-INCYTE CORPORATION-2025IN004088

PATIENT
  Age: 54 Year

DRUGS (1)
  1. JAKAFI [Suspect]
     Active Substance: RUXOLITINIB
     Indication: Myeloproliferative neoplasm
     Dosage: 15 MILLIGRAM, BID

REACTIONS (2)
  - Product physical issue [Unknown]
  - Off label use [Unknown]
